FAERS Safety Report 13373806 (Version 1)
Quarter: 2017Q1

REPORT INFORMATION
  Report Type: Spontaneous
  Country: US (occurrence: US)
  Receive Date: 20170327
  Receipt Date: 20170327
  Transmission Date: 20170429
  Serious: Yes (Death)
  Sender: FDA-Public Use
  Company Number: None

PATIENT
  Age: 64 Year
  Sex: Male
  Weight: 99.88 kg

DRUGS (1)
  1. CIPRO [Suspect]
     Active Substance: CIPROFLOXACIN HYDROCHLORIDE
     Indication: URINARY TRACT INFECTION
     Route: 048
     Dates: start: 20151120, end: 20151125

REACTIONS (7)
  - Visual impairment [None]
  - Head injury [None]
  - Completed suicide [None]
  - Gun shot wound [None]
  - Confusional state [None]
  - Paraesthesia [None]
  - Intentional self-injury [None]
